FAERS Safety Report 7273108-3 (Version None)
Quarter: 2011Q1

REPORT INFORMATION
  Report Type: 
  Country: None (occurrence: None)
  Receive Date: 20110203
  Receipt Date: 20110126
  Transmission Date: 20110831
  Serious: Yes (Other)
  Sender: FDA-Public Use
  Company Number: CHNY2011GB00441

PATIENT
  Age: 41 Year
  Sex: Female

DRUGS (3)
  1. OTRIVIN [Suspect]
     Indication: CAUTERY TO NOSE
  2. ANESTHETICS, GENERAL [Suspect]
  3. ADRENALINE [Suspect]
     Indication: CAUTERY TO NOSE
     Dosage: UNK
     Route: 061

REACTIONS (3)
  - MYDRIASIS [None]
  - OFF LABEL USE [None]
  - PUPILS UNEQUAL [None]
